FAERS Safety Report 7150565-4 (Version None)
Quarter: 2010Q4

REPORT INFORMATION
  Report Type: 
  Country: None (occurrence: None)
  Receive Date: 20101124
  Receipt Date: 20101118
  Transmission Date: 20110411
  Serious: Yes (Death, Hospitalization)
  Sender: FDA-Public Use
  Company Number: 2009AC000117

PATIENT
  Age: 79 Year
  Sex: Male

DRUGS (21)
  1. DIGOXIN [Suspect]
     Dosage: .125 MG; QD; PO
     Route: 048
     Dates: start: 20031101, end: 20071003
  2. KEPPRA [Concomitant]
  3. PRILOSEC [Concomitant]
  4. ACETAMINOPHEN [Concomitant]
  5. FLAGYL [Concomitant]
  6. MAGNESIUM OXIDE [Concomitant]
  7. MILK OF MAGNESIA [Concomitant]
  8. ALBUTEROL [Concomitant]
  9. VERAPAMIL [Concomitant]
  10. PROSCAR [Concomitant]
  11. ENALAPRIL MALEATE [Concomitant]
  12. FLOMAX [Concomitant]
  13. ASPIRIN [Concomitant]
  14. INSULIN [Concomitant]
  15. LASIX [Concomitant]
  16. PROTONIX [Concomitant]
  17. METOPROLOL TARTRATE [Concomitant]
  18. LOVASTATIN [Concomitant]
  19. NORVASC [Concomitant]
  20. AUGMENTIN '125' [Concomitant]
  21. CIPRO [Concomitant]

REACTIONS (31)
  - AORTIC VALVE SCLEROSIS [None]
  - ARTERIOSCLEROSIS CORONARY ARTERY [None]
  - BLOOD ALKALINE PHOSPHATASE INCREASED [None]
  - BLOOD CHLORIDE INCREASED [None]
  - BLOOD SODIUM INCREASED [None]
  - BRADYCARDIA [None]
  - CARDIOMEGALY [None]
  - CARDIOPULMONARY FAILURE [None]
  - CLOSTRIDIUM TEST POSITIVE [None]
  - CONFUSIONAL STATE [None]
  - CONTUSION [None]
  - DECUBITUS ULCER [None]
  - ECCHYMOSIS [None]
  - ECONOMIC PROBLEM [None]
  - ENCEPHALOMALACIA [None]
  - FALL [None]
  - GLYCOSYLATED HAEMOGLOBIN INCREASED [None]
  - HAEMOGLOBIN DECREASED [None]
  - HEAD INJURY [None]
  - MEMORY IMPAIRMENT [None]
  - MITRAL VALVE INCOMPETENCE [None]
  - MULTIPLE INJURIES [None]
  - OEDEMA PERIPHERAL [None]
  - PNEUMONIA [None]
  - RED BLOOD CELL COUNT DECREASED [None]
  - RENAL FAILURE [None]
  - SEPSIS [None]
  - SWELLING [None]
  - TRICUSPID VALVE INCOMPETENCE [None]
  - URINARY TRACT INFECTION [None]
  - UROSEPSIS [None]
